FAERS Safety Report 15270498 (Version 1)
Quarter: 2018Q3

REPORT INFORMATION
  Report Type: Spontaneous
  Country: US (occurrence: US)
  Receive Date: 20180726
  Receipt Date: 20180726
  Transmission Date: 20181010
  Serious: No
  Sender: FDA-Public Use
  Company Number: None

PATIENT
  Age: 39 Year
  Sex: Male

DRUGS (2)
  1. GENGRAF [Concomitant]
     Active Substance: CYCLOSPORINE
  2. MYCOPHENOLATE MOF TAB 500MG [Suspect]
     Active Substance: MYCOPHENOLATE MOFETIL
     Indication: RENAL TRANSPLANT

REACTIONS (2)
  - Fatigue [None]
  - Haemoglobin decreased [None]

NARRATIVE: CASE EVENT DATE: 20171001
